FAERS Safety Report 9517831 (Version 3)
Quarter: 2013Q4

REPORT INFORMATION
  Report Type: Spontaneous
  Country: DE (occurrence: DE)
  Receive Date: 20130912
  Receipt Date: 20131022
  Transmission Date: 20140711
  Serious: Yes (Other)
  Sender: FDA-Public Use
  Company Number: DE-AMGEN-DEUSP2013054574

PATIENT
  Age: 71 Year
  Sex: Male
  Weight: 115 kg

DRUGS (1)
  1. ENBREL [Suspect]
     Indication: RHEUMATOID ARTHRITIS
     Dosage: 50 MG, WEEKLY
     Route: 065
     Dates: start: 20090227

REACTIONS (4)
  - Fall [Recovered/Resolved]
  - Haematoma [Recovered/Resolved]
  - Haematoma infection [Recovered/Resolved]
  - Breast mass [Unknown]
